FAERS Safety Report 21796209 (Version 2)
Quarter: 2023Q1

REPORT INFORMATION
  Report Type: Spontaneous
  Country: US (occurrence: US)
  Receive Date: 20221229
  Receipt Date: 20230103
  Transmission Date: 20230418
  Serious: Yes (Hospitalization)
  Sender: FDA-Public Use
  Company Number: US-PFIZER INC-202201399912

PATIENT
  Age: 72 Year
  Sex: Female
  Weight: 73.94 kg

DRUGS (1)
  1. XELJANZ XR [Suspect]
     Active Substance: TOFACITINIB CITRATE
     Indication: Rheumatoid arthritis
     Dosage: 11 MG, 1X/DAY (ONE TABLET DAILY BY MOUTH)
     Route: 048
     Dates: start: 201901, end: 2022

REACTIONS (4)
  - Jugular vein thrombosis [Not Recovered/Not Resolved]
  - Transverse sinus thrombosis [Not Recovered/Not Resolved]
  - Sigmoid sinus thrombosis [Not Recovered/Not Resolved]
  - Thrombosis [Not Recovered/Not Resolved]

NARRATIVE: CASE EVENT DATE: 20221128
